FAERS Safety Report 4557048-6 (Version None)
Quarter: 2005Q1

REPORT INFORMATION
  Report Type: 
  Country: None (occurrence: None)
  Receive Date: 20050103
  Receipt Date: 20040910
  Transmission Date: 20050727
  Serious: Yes (Other)
  Sender: FDA-Public Use
  Company Number: 2004UW19121

PATIENT
  Age: 77 Year
  Sex: Female
  Weight: 79.8331 kg

DRUGS (5)
  1. CRESTOR [Suspect]
     Indication: HYPERCHOLESTEROLAEMIA
     Dosage: 10 MG PO
     Route: 048
     Dates: start: 20040601
  2. SECTRAL [Concomitant]
  3. HYDROCHLOROTHIAZIDE [Concomitant]
  4. ASPIRIN [Concomitant]
  5. POTASSIUM CHLORIDE [Concomitant]

REACTIONS (4)
  - BLOOD PRESSURE DECREASED [None]
  - COUGH [None]
  - DYSPHONIA [None]
  - DYSPNOEA [None]
